FAERS Safety Report 21286719 (Version 1)
Quarter: 2022Q3

REPORT INFORMATION
  Report Type: Spontaneous
  Country: US (occurrence: US)
  Receive Date: 20220902
  Receipt Date: 20220902
  Transmission Date: 20221026
  Serious: Yes (Hospitalization, Other)
  Sender: FDA-Public Use
  Company Number: US-PFIZER INC-PV202200049301

PATIENT
  Age: 64 Year
  Sex: Female

DRUGS (4)
  1. RITUXIMAB [Suspect]
     Active Substance: RITUXIMAB
     Indication: Rheumatoid arthritis
     Dosage: INFUSIONS EVERY 6 MONTHS
     Route: 042
  2. PREDNISONE [Concomitant]
     Active Substance: PREDNISONE
     Indication: Rheumatoid arthritis
     Dosage: 5 MG, DAILY
  3. PREDNISONE [Concomitant]
     Active Substance: PREDNISONE
     Dosage: 30 MG
  4. DEXAMETHASONE [Concomitant]
     Active Substance: DEXAMETHASONE
     Dosage: UNK

REACTIONS (4)
  - B-lymphocyte count decreased [Recovered/Resolved]
  - COVID-19 pneumonia [Recovered/Resolved]
  - COVID-19 [Recovered/Resolved]
  - Immune system disorder [Recovered/Resolved]
